FAERS Safety Report 16118040 (Version 3)
Quarter: 2020Q2

REPORT INFORMATION
  Report Type: Spontaneous
  Country: CA (occurrence: CA)
  Receive Date: 20190326
  Receipt Date: 20200414
  Transmission Date: 20200713
  Serious: Yes (Hospitalization, Disabling, Other)
  Sender: FDA-Public Use
  Company Number: CA-ABBVIE-19K-028-2717590-00

PATIENT
  Age: 28 Year
  Sex: Male
  Weight: 93 kg

DRUGS (10)
  1. ZOPICLONE [Concomitant]
     Active Substance: ZOPICLONE
     Indication: PRODUCT USED FOR UNKNOWN INDICATION
  2. XELJANZ [Suspect]
     Active Substance: TOFACITINIB CITRATE
     Indication: COLITIS ULCERATIVE
     Route: 048
     Dates: start: 20181210, end: 201903
  3. DILAUDID [Concomitant]
     Active Substance: HYDROMORPHONE HYDROCHLORIDE
     Indication: PAIN
  4. VEDOLIZUMAB [Concomitant]
     Active Substance: VEDOLIZUMAB
     Indication: PRODUCT USED FOR UNKNOWN INDICATION
  5. IMURAN [Concomitant]
     Active Substance: AZATHIOPRINE
     Indication: PRODUCT USED FOR UNKNOWN INDICATION
  6. XELJANZ [Suspect]
     Active Substance: TOFACITINIB CITRATE
     Route: 048
     Dates: start: 201903
  7. PREDNISONE. [Concomitant]
     Active Substance: PREDNISONE
     Indication: PRODUCT USED FOR UNKNOWN INDICATION
  8. INFLIXIMAB [Suspect]
     Active Substance: INFLIXIMAB
     Indication: COLITIS ULCERATIVE
     Route: 065
  9. HUMIRA [Suspect]
     Active Substance: ADALIMUMAB
     Indication: COLITIS ULCERATIVE
     Route: 058
  10. METHOTREXATE. [Suspect]
     Active Substance: METHOTREXATE
     Indication: COLITIS ULCERATIVE
     Route: 065

REACTIONS (13)
  - Therapeutic product effect incomplete [Not Recovered/Not Resolved]
  - Malaise [Not Recovered/Not Resolved]
  - Therapeutic product effect decreased [Unknown]
  - Drug dependence [Not Recovered/Not Resolved]
  - Colitis ulcerative [Not Recovered/Not Resolved]
  - Haematochezia [Not Recovered/Not Resolved]
  - Arthralgia [Not Recovered/Not Resolved]
  - Abdominal pain lower [Not Recovered/Not Resolved]
  - Weight increased [Not Recovered/Not Resolved]
  - Stress [Not Recovered/Not Resolved]
  - Drug ineffective [Unknown]
  - Frequent bowel movements [Not Recovered/Not Resolved]
  - Abdominal pain [Not Recovered/Not Resolved]

NARRATIVE: CASE EVENT DATE: 2019
